FAERS Safety Report 8214889-1 (Version None)
Quarter: 2012Q1

REPORT INFORMATION
  Report Type: 
  Country: None (occurrence: None)
  Receive Date: 20120316
  Receipt Date: 20120309
  Transmission Date: 20120608
  Serious: Yes (Hospitalization)
  Sender: FDA-Public Use
  Company Number: US-B.I. PHARMACEUTICALS,INC./RIDGEFIELD-2012-BP-04535BP

PATIENT
  Sex: Male

DRUGS (5)
  1. PROZAC [Concomitant]
     Indication: DEPRESSION
  2. LISINOPRIL [Concomitant]
     Indication: HYPERTENSION
     Dosage: 20 MG
     Route: 048
  3. ASPIRIN [Concomitant]
     Indication: HEART RATE ABNORMAL
     Dosage: 81 MG
     Route: 048
  4. PRADAXA [Suspect]
     Indication: ATRIAL FIBRILLATION
     Dosage: 300 MG
     Route: 048
     Dates: start: 20111123, end: 20111124
  5. AMIODARONE HYDROCHLORIDE [Concomitant]
     Indication: HEART RATE ABNORMAL
     Dosage: 200 MG
     Route: 048

REACTIONS (1)
  - DYSPNOEA [None]
